FAERS Safety Report 8167593-2 (Version None)
Quarter: 2012Q1

REPORT INFORMATION
  Report Type: 
  Country: None (occurrence: None)
  Receive Date: 20120227
  Receipt Date: 20120215
  Transmission Date: 20120608
  Serious: Yes (Other)
  Sender: FDA-Public Use
  Company Number: JP-NAPPMUNDI-MAG-2011-0001584

PATIENT
  Sex: Male

DRUGS (11)
  1. OXYCODONE HCL [Suspect]
     Dosage: 40 MG, DAILY
     Route: 048
     Dates: start: 20110715, end: 20110715
  2. MAGMITT [Concomitant]
     Route: 048
  3. OXYCODONE HCL [Suspect]
     Indication: CANCER PAIN
     Dosage: 40 MG, DAILY
     Route: 048
     Dates: start: 20110708, end: 20110708
  4. OXYCODONE HCL [Suspect]
     Dosage: 50 MG, DAILY
     Route: 048
     Dates: start: 20110709, end: 20110711
  5. GAMOFA [Concomitant]
     Route: 048
  6. ZOLPIDEM [Suspect]
     Indication: PRODUCT USED FOR UNKNOWN INDICATION
     Dosage: UNK
     Route: 048
  7. HYPEN                              /00613801/ [Concomitant]
     Indication: CANCER PAIN
     Dosage: 400 MG, DAILY
     Route: 048
     Dates: start: 20110714
  8. OXYCODONE HCL [Suspect]
     Dosage: 10 MG, DAILY
     Route: 048
     Dates: start: 20110716, end: 20110912
  9. OXYCODONE HCL [Suspect]
     Indication: CANCER PAIN
     Dosage: 2.5 MG, DAILY
     Route: 048
     Dates: start: 20110708, end: 20110715
  10. FENTANYL CITRATE [Concomitant]
     Indication: CANCER PAIN
     Dosage: 2 MG, DAILY
     Route: 062
     Dates: start: 20110712, end: 20110713
  11. FENTANYL CITRATE [Concomitant]
     Dosage: 3 MG, DAILY
     Route: 062
     Dates: start: 20110714, end: 20110714

REACTIONS (2)
  - DELIRIUM [None]
  - SOMNOLENCE [None]
